FAERS Safety Report 7339316-8 (Version None)
Quarter: 2011Q1

REPORT INFORMATION
  Report Type: 
  Country: None (occurrence: None)
  Receive Date: 20110308
  Receipt Date: 20110302
  Transmission Date: 20110831
  Serious: Yes (Other)
  Sender: FDA-Public Use
  Company Number: JP-PFIZER INC-2011033898

PATIENT
  Age: 66 Year
  Sex: Male

DRUGS (13)
  1. ABILIFY [Concomitant]
     Dosage: 12 MG, 1X/DAY
     Route: 048
     Dates: start: 20110227
  2. LANSOPRAZOLE [Concomitant]
     Dosage: 15 MG, 1X/DAY
     Route: 048
     Dates: start: 20100428
  3. CHAMPIX [Suspect]
     Indication: SMOKING CESSATION THERAPY
     Dosage: 2MG
     Route: 048
     Dates: start: 20100903, end: 20110215
  4. SHINLUCK [Concomitant]
     Dosage: 3 DF, 1X/DAY
     Route: 048
     Dates: start: 20100428
  5. CHAMPIX [Suspect]
     Dosage: 1MG
     Route: 048
     Dates: start: 20110216, end: 20110302
  6. ZYPREXA [Concomitant]
     Dosage: 5 MG, 1X/DAY
     Route: 048
     Dates: start: 20110227
  7. EURODIN [Concomitant]
     Dosage: 2 MG, 1X/DAY
     Route: 048
     Dates: start: 20100428
  8. PURSENNID [Concomitant]
     Dosage: 4 DF, 1X/DAY
     Route: 048
     Dates: start: 20100428
  9. ZYPREXA [Concomitant]
     Indication: SCHIZOPHRENIA
     Dosage: 10 MG, 1X/DAY
     Route: 048
     Dates: start: 20100428, end: 20110226
  10. MECOBALAMIN [Concomitant]
     Dosage: 500 UG, 1X/DAY
     Route: 048
     Dates: start: 20100428
  11. TOUKAKUJOUKITOU [Concomitant]
     Dosage: 7.5 G, 3X/DAY
     Route: 048
     Dates: start: 20100428
  12. ABILIFY [Concomitant]
     Dosage: 24 MG, 1X/DAY
     Route: 048
     Dates: start: 20100428, end: 20110226
  13. MAG-LAX [Concomitant]
     Dosage: 2 G, 3X/DAY
     Route: 048
     Dates: start: 20100428

REACTIONS (1)
  - GAIT DISTURBANCE [None]
